FAERS Safety Report 5074163-1 (Version None)
Quarter: 2006Q3

REPORT INFORMATION
  Report Type: 
  Country: None (occurrence: None)
  Receive Date: 20060803
  Receipt Date: 20060724
  Transmission Date: 20061208
  Serious: Yes (Death, Hospitalization, Other)
  Sender: FDA-Public Use
  Company Number: 2006JP002087

PATIENT
  Age: 59 Year
  Sex: Male
  Weight: 42.5 kg

DRUGS (16)
  1. PROGRAF [Suspect]
     Indication: BONE MARROW TRANSPLANT
     Dosage: SEE IMAGE
     Route: 048
     Dates: start: 20040103, end: 20040214
  2. PROGRAF [Suspect]
     Indication: BONE MARROW TRANSPLANT
     Dosage: SEE IMAGE
     Route: 048
     Dates: start: 20040222, end: 20040227
  3. SOL MEDROL (METHYLPREDNISOLONE, SUCCINATE SODIUM) INJECTION [Suspect]
     Dosage: SEE IMAGE
     Dates: start: 20031231, end: 20040107
  4. PN-TWIN NO. 2 (AMINO ACIDS, CARBOHYDRATES NOS, ELECTROLYTES NOS) INJEC [Concomitant]
  5. PRIMPERAN (METOCLOPRAMIDE) INJECTION [Concomitant]
  6. NEO-MINOPHAGEN C (GLYCYRRHIZIC ACID, AMMONIUM SALT) [Concomitant]
  7. TIENAM (IMIPENEM, CILASTATIN SODIUM) INJECTION [Concomitant]
  8. FUNGUARD (MICAFUNGIN) INJECTION [Concomitant]
  9. NEUPOGEN [Concomitant]
  10. SANDIMMUN INJECTION [Concomitant]
  11. DENOSINE (GANCICLOVIR) INJECTION [Concomitant]
  12. FUTHAN (NAFAMOSTAT MESILATE) INJECTION [Concomitant]
  13. ROCEPHIN [Concomitant]
  14. GASTER INJECTION [Concomitant]
  15. DIFLUCAN [Concomitant]
  16. HUMULIN R (INSULIN HUMAN) INJECTION [Concomitant]

REACTIONS (8)
  - BLOOD CREATINE INCREASED [None]
  - CEREBRAL HAEMORRHAGE [None]
  - DEHYDRATION [None]
  - DIABETIC COMA [None]
  - LEUKOENCEPHALOPATHY [None]
  - PANCREATITIS ACUTE [None]
  - PNEUMONIA [None]
  - THROMBOTIC MICROANGIOPATHY [None]
